FAERS Safety Report 8009185-1 (Version None)
Quarter: 2011Q4

REPORT INFORMATION
  Report Type: 
  Country: None (occurrence: None)
  Receive Date: 20111227
  Receipt Date: 20111221
  Transmission Date: 20120403
  Serious: Yes (Hospitalization, Other)
  Sender: FDA-Public Use
  Company Number: PHHY2011TW098729

PATIENT
  Sex: Female
  Weight: 47.5 kg

DRUGS (3)
  1. TAXOL [Concomitant]
     Dosage: UNK
     Route: 065
     Dates: start: 20110625
  2. ZOLEDRONIC [Suspect]
     Dosage: 4 MG,
     Dates: start: 20100512
  3. GEMZAR [Concomitant]
     Dosage: UNK
     Route: 065
     Dates: start: 20110625

REACTIONS (4)
  - ADENOCARCINOMA [None]
  - DYSPNOEA [None]
  - PERICARDIAL EFFUSION [None]
  - MALIGNANT PLEURAL EFFUSION [None]
